FAERS Safety Report 12239988 (Version 3)
Quarter: 2016Q2

REPORT INFORMATION
  Report Type: Spontaneous
  Country: JP (occurrence: JP)
  Receive Date: 20160405
  Receipt Date: 20160530
  Transmission Date: 20160815
  Serious: Yes (Hospitalization, Other)
  Sender: FDA-Public Use
  Company Number: JP-009507513-1604JPN001081

PATIENT
  Age: 83 Year
  Sex: Male

DRUGS (2)
  1. REBETOL [Suspect]
     Active Substance: RIBAVIRIN
     Indication: HEPATITIS C
     Dosage: 200 MG ONCE DAILY (ALSO REPORTED AS DIVIDED DOSE FREQUENCY UNKNOWN)
     Route: 048
     Dates: start: 20151105, end: 20151224
  2. SOVALDI [Suspect]
     Active Substance: SOFOSBUVIR
     Indication: HEPATITIS C
     Dosage: 400 MG/DAY (ALSO REPORTED AS DIVIDED DOSE FREQUENCY UNKNOWN)
     Route: 048
     Dates: start: 20151105, end: 20160127

REACTIONS (3)
  - Drug ineffective [Unknown]
  - Haemoglobin decreased [Unknown]
  - Cardiac failure [Unknown]

NARRATIVE: CASE EVENT DATE: 2015
